FAERS Safety Report 6267641-0 (Version None)
Quarter: 2009Q3

REPORT INFORMATION
  Report Type: 
  Country: None (occurrence: None)
  Receive Date: 20090714
  Receipt Date: 20090702
  Transmission Date: 20100115
  Serious: Yes (Other)
  Sender: FDA-Public Use
  Company Number: US-ELI_LILLY_AND_COMPANY-US200907000660

PATIENT
  Sex: Male

DRUGS (6)
  1. STRATTERA [Suspect]
     Indication: ATTENTION DEFICIT/HYPERACTIVITY DISORDER
     Dosage: 60 MG, DAILY (1/D)
     Route: 065
     Dates: start: 20090501
  2. ADVAIR HFA [Concomitant]
     Indication: CHRONIC OBSTRUCTIVE PULMONARY DISEASE
     Dosage: UNK, UNKNOWN
     Route: 065
  3. ALBUTEROL [Concomitant]
     Dosage: UNK, AS NEEDED
     Route: 065
  4. ALPRAZOLAM [Concomitant]
     Dosage: 0.5 MG, 3/D
     Route: 065
  5. KLONOPIN [Concomitant]
     Dosage: 0.5 MG, EACH EVENING
     Route: 065
  6. WELLBUTRIN [Concomitant]
     Dosage: UNK, UNKNOWN
     Route: 065

REACTIONS (4)
  - ABNORMAL SENSATION IN EYE [None]
  - EYE HAEMORRHAGE [None]
  - EYE PAIN [None]
  - LACRIMATION INCREASED [None]
